FAERS Safety Report 24409274 (Version 2)
Quarter: 2024Q4

REPORT INFORMATION
  Report Type: Spontaneous
  Country: US (occurrence: US)
  Receive Date: 20241008
  Receipt Date: 20241017
  Transmission Date: 20250114
  Serious: Yes (Other)
  Sender: AUROBINDO
  Company Number: US-AUROBINDO-AUR-APL-2024-048134

PATIENT
  Age: 76 Year
  Sex: Male
  Weight: 41.6 kg

DRUGS (46)
  1. WARFARIN [Suspect]
     Active Substance: WARFARIN
     Indication: Pulmonary embolism
     Dosage: 14 MILLIGRAM, DAILY
     Route: 065
  2. WARFARIN [Suspect]
     Active Substance: WARFARIN
     Indication: Tuberculosis
     Dosage: 4 MILLIGRAM
     Route: 065
  3. WARFARIN [Suspect]
     Active Substance: WARFARIN
     Dosage: 5 MILLIGRAM
     Route: 065
  4. WARFARIN [Suspect]
     Active Substance: WARFARIN
     Dosage: 5 MILLIGRAM
     Route: 065
  5. WARFARIN [Suspect]
     Active Substance: WARFARIN
     Dosage: 6 MILLIGRAM
     Route: 065
  6. WARFARIN [Suspect]
     Active Substance: WARFARIN
     Dosage: 6 MILLIGRAM
     Route: 065
  7. WARFARIN [Suspect]
     Active Substance: WARFARIN
     Dosage: 6.5 MILLIGRAM
     Route: 065
  8. WARFARIN [Suspect]
     Active Substance: WARFARIN
     Dosage: 7.5 MILLIGRAM
     Route: 065
  9. WARFARIN [Suspect]
     Active Substance: WARFARIN
     Dosage: 7.5 MILLIGRAM
     Route: 065
  10. WARFARIN [Suspect]
     Active Substance: WARFARIN
     Dosage: 10 MILLIGRAM
     Route: 065
  11. WARFARIN [Suspect]
     Active Substance: WARFARIN
     Dosage: 10 MILLIGRAM
     Route: 065
  12. WARFARIN [Suspect]
     Active Substance: WARFARIN
     Dosage: 10 MILLIGRAM
     Route: 065
  13. WARFARIN [Suspect]
     Active Substance: WARFARIN
     Dosage: 12 MILLIGRAM
     Route: 065
  14. WARFARIN [Suspect]
     Active Substance: WARFARIN
     Dosage: 10 MILLIGRAM
     Route: 065
  15. WARFARIN [Suspect]
     Active Substance: WARFARIN
     Dosage: 12 MILLIGRAM
     Route: 065
  16. WARFARIN [Suspect]
     Active Substance: WARFARIN
     Dosage: 12 MILLIGRAM
     Route: 065
  17. WARFARIN [Suspect]
     Active Substance: WARFARIN
     Dosage: 12 MILLIGRAM
     Route: 065
  18. WARFARIN [Suspect]
     Active Substance: WARFARIN
     Dosage: 10 MILLIGRAM
     Route: 065
  19. WARFARIN [Suspect]
     Active Substance: WARFARIN
     Dosage: 12 MILLIGRAM
     Route: 065
  20. WARFARIN [Suspect]
     Active Substance: WARFARIN
     Dosage: 14 MILLIGRAM
     Route: 065
  21. WARFARIN [Suspect]
     Active Substance: WARFARIN
     Dosage: 12 MILLIGRAM
     Route: 065
  22. WARFARIN [Suspect]
     Active Substance: WARFARIN
     Dosage: 10 MILLIGRAM
     Route: 065
  23. WARFARIN [Suspect]
     Active Substance: WARFARIN
     Dosage: 14 MILLIGRAM
     Route: 065
  24. WARFARIN [Suspect]
     Active Substance: WARFARIN
     Dosage: 14 MILLIGRAM
     Route: 065
  25. WARFARIN [Suspect]
     Active Substance: WARFARIN
     Dosage: 14 MILLIGRAM
     Route: 065
  26. WARFARIN [Suspect]
     Active Substance: WARFARIN
     Dosage: 10 MILLIGRAM
     Route: 065
  27. WARFARIN [Suspect]
     Active Substance: WARFARIN
     Dosage: 14 MILLIGRAM
     Route: 065
  28. WARFARIN [Suspect]
     Active Substance: WARFARIN
     Dosage: 14 MILLIGRAM
     Route: 065
  29. WARFARIN [Suspect]
     Active Substance: WARFARIN
     Dosage: 14 MILLIGRAM
     Route: 065
  30. WARFARIN [Suspect]
     Active Substance: WARFARIN
     Dosage: 15 MILLIGRAM
     Route: 065
  31. WARFARIN [Suspect]
     Active Substance: WARFARIN
     Dosage: 14 MILLIGRAM
     Route: 065
  32. WARFARIN [Suspect]
     Active Substance: WARFARIN
     Dosage: 14 MILLIGRAM
     Route: 065
  33. WARFARIN [Suspect]
     Active Substance: WARFARIN
     Dosage: 14 MILLIGRAM
     Route: 065
  34. WARFARIN [Suspect]
     Active Substance: WARFARIN
     Dosage: 14 MILLIGRAM
     Route: 065
  35. WARFARIN [Suspect]
     Active Substance: WARFARIN
     Dosage: 14 MILLIGRAM
     Route: 065
  36. WARFARIN [Suspect]
     Active Substance: WARFARIN
     Dosage: 12 MILLIGRAM
     Route: 065
  37. RIFAMPIN [Suspect]
     Active Substance: RIFAMPIN
     Indication: Tuberculosis
     Dosage: UNK
     Route: 065
  38. RIFAMPIN [Suspect]
     Active Substance: RIFAMPIN
     Dosage: 300 MILLIGRAM, DAILY
     Route: 065
  39. RIFAMPIN [Suspect]
     Active Substance: RIFAMPIN
     Dosage: 600 MILLIGRAM, DAILY
     Route: 065
  40. ENOXAPARIN [Concomitant]
     Active Substance: ENOXAPARIN
     Indication: Product used for unknown indication
     Dosage: 1 MILLIGRAM/KILOGRAM, TWO TIMES A DAY
     Route: 058
  41. ENOXAPARIN [Concomitant]
     Active Substance: ENOXAPARIN
     Dosage: UNK UNK, 3 TIMES A DAY
     Route: 065
  42. ENOXAPARIN [Concomitant]
     Active Substance: ENOXAPARIN
     Dosage: 40 MILLIGRAM, TWO TIMES A DAY
     Route: 065
  43. ISONIAZID [Concomitant]
     Active Substance: ISONIAZID
     Indication: Product used for unknown indication
     Dosage: 300 MILLIGRAM, DAILY
     Route: 065
  44. PYRAZINAMIDE [Concomitant]
     Active Substance: PYRAZINAMIDE
     Indication: Product used for unknown indication
     Dosage: 1000 MILLIGRAM, DAILY
     Route: 065
  45. ETHAMBUTOL [Concomitant]
     Active Substance: ETHAMBUTOL HYDROCHLORIDE
     Indication: Product used for unknown indication
     Dosage: 800 MILLIGRAM, DAILY
     Route: 065
  46. APIXABAN [Concomitant]
     Active Substance: APIXABAN
     Indication: Product used for unknown indication
     Dosage: 5 MILLIGRAM, TWO TIMES A DAY
     Route: 065

REACTIONS (2)
  - Gastrointestinal haemorrhage [Recovered/Resolved]
  - International normalised ratio increased [Unknown]
